FAERS Safety Report 17127158 (Version 2)
Quarter: 2019Q4

REPORT INFORMATION
  Report Type: Report from Study
  Country: US (occurrence: US)
  Receive Date: 20191209
  Receipt Date: 20191219
  Transmission Date: 20200122
  Serious: Yes (Other)
  Sender: FDA-Public Use
  Company Number: US-GILEAD-2019-0441249

PATIENT
  Age: 52 Year
  Sex: Female

DRUGS (2)
  1. ADCIRCA [Concomitant]
     Active Substance: TADALAFIL
  2. AMBRISENTAN [Suspect]
     Active Substance: AMBRISENTAN
     Indication: PULMONARY HYPERTENSION
     Dosage: 10 MG, QD
     Route: 048
     Dates: start: 20160811

REACTIONS (7)
  - Dyspnoea exertional [Unknown]
  - Pulmonary arterial hypertension [Unknown]
  - Chest pain [Unknown]
  - Neoplasm malignant [Unknown]
  - Condition aggravated [Unknown]
  - Dizziness [Unknown]
  - Palpitations [Unknown]
